FAERS Safety Report 9777381 (Version 3)
Quarter: 2014Q1

REPORT INFORMATION
  Report Type: Spontaneous
  Country: FR (occurrence: FR)
  Receive Date: 20131221
  Receipt Date: 20140101
  Transmission Date: 20141002
  Serious: Yes (Hospitalization, Other)
  Sender: FDA-Public Use
  Company Number: PHHY2013FR147703

PATIENT
  Sex: Female

DRUGS (9)
  1. EXELON [Suspect]
     Indication: DEMENTIA ALZHEIMER^S TYPE
     Dosage: 4.6 MG/24H
     Route: 062
  2. EXELON [Suspect]
     Dosage: 9.5 MG DAILY
     Route: 062
     Dates: start: 20131120, end: 20131129
  3. PROPANOLOL [Suspect]
     Indication: HYPERTENSION
     Dosage: 40 MG QD
     Dates: end: 20131129
  4. PROPANOLOL [Suspect]
     Dosage: 20 MG QD
  5. BETA BLOCKING AGENTS [Concomitant]
  6. KARDEGIC [Concomitant]
     Dosage: 75 MG QD
  7. LERCAN [Concomitant]
     Dosage: 10 MG QD
  8. LEVOTHYROX [Concomitant]
     Dosage: UNK UKN, UNK
  9. OMEPRAZOLE [Concomitant]
     Dosage: 30 MG QD

REACTIONS (2)
  - Grand mal convulsion [Recovered/Resolved]
  - Bradycardia [Recovered/Resolved]
